FAERS Safety Report 9202410 (Version 1)
Quarter: 2013Q2

REPORT INFORMATION
  Report Type: Spontaneous
  Country: SE (occurrence: SE)
  Receive Date: 20130401
  Receipt Date: 20130401
  Transmission Date: 20140414
  Serious: Yes (Hospitalization)
  Sender: FDA-Public Use
  Company Number: SE-PFIZER INC-2013099855

PATIENT
  Age: 71 Year
  Sex: Male

DRUGS (1)
  1. DALACIN [Suspect]
     Indication: OSTEITIS
     Dosage: 300 MG, 3X/DAY

REACTIONS (3)
  - Bacterial infection [Recovering/Resolving]
  - Abdominal discomfort [Recovering/Resolving]
  - Arthritis [Recovering/Resolving]
